FAERS Safety Report 6857160-2 (Version None)
Quarter: 2010Q3

REPORT INFORMATION
  Report Type: 
  Country: None (occurrence: None)
  Receive Date: 20100719
  Receipt Date: 20100210
  Transmission Date: 20110219
  Serious: No
  Sender: FDA-Public Use
  Company Number: US-KINGPHARMUSA00001-K201000166

PATIENT
  Age: 88 Year
  Sex: Male
  Weight: 76.644 kg

DRUGS (7)
  1. LEVOXYL [Suspect]
     Indication: HYPOTHYROIDISM
     Dosage: 112 MCG, QD
     Route: 048
  2. COREG [Concomitant]
     Indication: CARDIAC FAILURE CONGESTIVE
     Dosage: UNK
  3. AMBIEN [Concomitant]
     Indication: INSOMNIA
     Dosage: UNK
  4. CLOZAPINE [Concomitant]
     Dosage: UNK
  5. ATACAND [Concomitant]
     Dosage: 16 MG, QD
  6. CRESTOR [Concomitant]
     Indication: BLOOD CHOLESTEROL INCREASED
     Dosage: UNK
  7. HYDROCODONE [Concomitant]
     Indication: PAIN
     Dosage: UNK

REACTIONS (1)
  - BLOOD THYROID STIMULATING HORMONE INCREASED [None]
